FAERS Safety Report 7575473-6 (Version None)
Quarter: 2011Q2

REPORT INFORMATION
  Report Type: 
  Country: None (occurrence: None)
  Receive Date: 20110627
  Receipt Date: 20110617
  Transmission Date: 20111010
  Serious: Yes (Other)
  Sender: FDA-Public Use
  Company Number: US-ASTRAZENECA-2010SE20385

PATIENT
  Age: 86 Year
  Sex: Female

DRUGS (1)
  1. NEXIUM [Suspect]
     Indication: GASTROOESOPHAGEAL REFLUX DISEASE
     Route: 048

REACTIONS (14)
  - ABDOMINAL DISCOMFORT [None]
  - MALAISE [None]
  - VOMITING [None]
  - TYMPANIC MEMBRANE PERFORATION [None]
  - NERVE COMPRESSION [None]
  - FRACTURE [None]
  - HYPOACUSIS [None]
  - NAUSEA [None]
  - DRUG DOSE OMISSION [None]
  - GASTROOESOPHAGEAL REFLUX DISEASE [None]
  - ASTHMA [None]
  - EATING DISORDER [None]
  - SLEEP DISORDER DUE TO GENERAL MEDICAL CONDITION, INSOMNIA TYPE [None]
  - INAPPROPRIATE SCHEDULE OF DRUG ADMINISTRATION [None]
